FAERS Safety Report 20476560 (Version 1)
Quarter: 2022Q1

REPORT INFORMATION
  Report Type: Spontaneous
  Country: US (occurrence: US)
  Receive Date: 20220215
  Receipt Date: 20220215
  Transmission Date: 20220423
  Serious: No
  Sender: FDA-Public Use
  Company Number: US-SUNOVION-2022SUN000483

PATIENT
  Sex: Female
  Weight: 78.458 kg

DRUGS (6)
  1. LATUDA [Suspect]
     Active Substance: LURASIDONE HYDROCHLORIDE
     Indication: Bipolar disorder
     Dosage: 120 MG, BID (ONCE WITH BREAKFAST AND ONCE IN THE EVENING)
     Route: 048
  2. GABAPENTIN [Concomitant]
     Active Substance: GABAPENTIN
  3. WELLBUTRIN [Concomitant]
     Active Substance: BUPROPION HYDROCHLORIDE
  4. HALDOL [Concomitant]
     Active Substance: HALOPERIDOL
  5. PROPRANOLOL [Concomitant]
     Active Substance: PROPRANOLOL HYDROCHLORIDE
  6. CLOZAPINE [Concomitant]
     Active Substance: CLOZAPINE

REACTIONS (4)
  - Feeling abnormal [Not Recovered/Not Resolved]
  - Weight decreased [Not Recovered/Not Resolved]
  - Prescribed overdose [Unknown]
  - Off label use [Unknown]
